FAERS Safety Report 22141122 (Version 9)
Quarter: 2023Q4

REPORT INFORMATION
  Report Type: Other
  Country: DE (occurrence: None)
  Receive Date: 20230327
  Receipt Date: 20231013
  Transmission Date: 20240110
  Serious: Yes (Other)
  Sender: FDA-Public Use
  Company Number: DE-ROCHE-3315373

PATIENT
  Age: 42 Year
  Sex: Female
  Weight: 54 kg

DRUGS (3)
  1. OCREVUS [Suspect]
     Active Substance: OCRELIZUMAB
     Indication: Relapsing multiple sclerosis
     Route: 042
     Dates: start: 20210817, end: 20210831
  2. OCREVUS [Suspect]
     Active Substance: OCRELIZUMAB
     Route: 042
     Dates: start: 20220301
  3. DOXYCYCLINE [Concomitant]
     Active Substance: DOXYCYCLINE
     Route: 048
     Dates: start: 20230112, end: 20230129

REACTIONS (1)
  - Borrelia infection [Not Recovered/Not Resolved]

NARRATIVE: CASE EVENT DATE: 20230112
